FAERS Safety Report 6838298-2 (Version None)
Quarter: 2010Q3

REPORT INFORMATION
  Report Type: 
  Country: None (occurrence: None)
  Receive Date: 20100709
  Receipt Date: 20100624
  Transmission Date: 20110219
  Serious: Yes (Disabling)
  Sender: FDA-Public Use
  Company Number: RB-26540-2009

PATIENT
  Sex: Female

DRUGS (4)
  1. SUBOXONE [Suspect]
     Indication: DRUG DEPENDENCE
     Dosage: 2MG UNKNOWN,
  2. SUBUTEX (SUBUTEX) (RECKITT BENCKISER PHARMACEUTIALS INC.) [Suspect]
     Indication: DRUG DEPENDENCE
     Dosage: 2MG UNKNOWN, 4MG UNKNOWN, 3MG UNKNOWN, 4MG UNKNOWN
  3. SUBUTEX (SUBUTEX) (RECKITT BENCKISER PHARMACEUTICALS INC.) [Suspect]
  4. SUBUTEX (SUBUTEX) (RECKITT BENCKISER PHARMACEUTICALS INCS.) [Suspect]

REACTIONS (3)
  - DYSGEUSIA [None]
  - NAUSEA [None]
  - PRODUCT QUALITY ISSUE [None]
